FAERS Safety Report 26039003 (Version 1)
Quarter: 2025Q4

REPORT INFORMATION
  Report Type: Spontaneous
  Country: SA (occurrence: SA)
  Receive Date: 20251113
  Receipt Date: 20251113
  Transmission Date: 20260117
  Serious: Yes (Other)
  Sender: ROCHE
  Company Number: SA-CHEPLA-2025012661

PATIENT
  Age: 18 Year
  Sex: Male
  Weight: 35 kg

DRUGS (16)
  1. GANCICLOVIR [Suspect]
     Active Substance: GANCICLOVIR
     Indication: Cytomegalovirus infection
     Dosage: DAILY PROPHYLAXIS
     Route: 065
  2. GANCICLOVIR [Suspect]
     Active Substance: GANCICLOVIR
     Dosage: BID
     Route: 065
  3. VALGANCICLOVIR [Suspect]
     Active Substance: VALGANCICLOVIR
     Indication: Cytomegalovirus infection
     Dosage: BID
     Route: 065
  4. VALGANCICLOVIR [Suspect]
     Active Substance: VALGANCICLOVIR
     Dosage: PROPHYLAXIS
     Route: 065
  5. METHYLPREDNISOLONE [Suspect]
     Active Substance: METHYLPREDNISOLONE
     Indication: Cytomegalovirus infection
     Dosage: ONCE
     Route: 065
  6. METHYLPREDNISOLONE [Suspect]
     Active Substance: METHYLPREDNISOLONE
     Dosage: DURING FIRST ACR EPISODE
     Route: 065
  7. METHYLPREDNISOLONE [Suspect]
     Active Substance: METHYLPREDNISOLONE
     Dosage: AT 10 MONTHS POST-TRANSPLANT, FOLLOWED BY GRADUAL TAPERING
     Route: 065
  8. FOSCARNET [Suspect]
     Active Substance: FOSCARNET
     Indication: Cytomegalovirus gastroenteritis
     Dosage: TID
     Route: 042
  9. MARIBAVIR [Suspect]
     Active Substance: MARIBAVIR
     Indication: Cytomegalovirus infection
     Dosage: BID
     Route: 065
  10. LETERMOVIR [Suspect]
     Active Substance: LETERMOVIR
     Indication: Cytomegalovirus infection
     Dosage: DAILY
     Route: 065
  11. ANTI-THYMOCYTE GLOBULIN (RABBIT) NOS [Concomitant]
     Active Substance: LAPINE T-LYMPHOCYTE IMMUNE GLOBULIN
     Route: 065
  12. TACROLIMUS [Concomitant]
     Active Substance: TACROLIMUS
     Indication: Cytomegalovirus infection
     Dosage: MAINTENANCE
     Route: 065
  13. INFLIXIMAB [Concomitant]
     Active Substance: INFLIXIMAB
     Route: 065
  14. VEDOLIZUMAB [Concomitant]
     Active Substance: VEDOLIZUMAB
     Dosage: SINGLE DOSE
     Route: 065
  15. EVEROLIMUS [Concomitant]
     Active Substance: EVEROLIMUS
     Route: 065
  16. SIROLIMUS [Concomitant]
     Active Substance: SIROLIMUS
     Route: 065

REACTIONS (4)
  - Acute kidney injury [Unknown]
  - Transplant rejection [Unknown]
  - Drug ineffective [Unknown]
  - Drug resistance [Unknown]
